FAERS Safety Report 7393987-9 (Version None)
Quarter: 2011Q2

REPORT INFORMATION
  Report Type: 
  Country: None (occurrence: None)
  Receive Date: 20110405
  Receipt Date: 20100601
  Transmission Date: 20111010
  Serious: No
  Sender: FDA-Public Use
  Company Number: US-AMGEN-KDL417817

PATIENT
  Sex: Female

DRUGS (4)
  1. NEULASTA [Suspect]
     Indication: CHEMOTHERAPY
  2. TRASTUZUMAB [Suspect]
     Dosage: UNK UNK, QWK
  3. DOCETAXEL [Concomitant]
  4. CARBOPLATIN [Concomitant]
     Indication: CHEMOTHERAPY

REACTIONS (3)
  - RASH PAPULAR [None]
  - PARAESTHESIA [None]
  - PRURITUS [None]
